FAERS Safety Report 13516742 (Version 1)
Quarter: 2017Q2

REPORT INFORMATION
  Report Type: Spontaneous
  Country: US (occurrence: US)
  Receive Date: 20170505
  Receipt Date: 20170505
  Transmission Date: 20170830
  Serious: Yes (Hospitalization, Other)
  Sender: FDA-Public Use
  Company Number: US-ALVOGEN-2017-ALVOGEN-092021

PATIENT
  Age: 23 Year
  Sex: Male

DRUGS (7)
  1. PIPERACILLIN/TAZOBACTAM [Suspect]
     Active Substance: PIPERACILLIN SODIUM\TAZOBACTAM SODIUM
     Indication: DYSPNOEA
  2. VANCOMYCIN [Suspect]
     Active Substance: VANCOMYCIN
     Indication: SECRETION DISCHARGE
     Dosage: ON HD06, HD07 AND HD08
  3. LISINOPRIL. [Suspect]
     Active Substance: LISINOPRIL
     Indication: CARDIOMYOPATHY
  4. VANCOMYCIN [Suspect]
     Active Substance: VANCOMYCIN
     Indication: SECRETION DISCHARGE
     Dosage: ON HD04 AND HD05
  5. PIPERACILLIN/TAZOBACTAM [Suspect]
     Active Substance: PIPERACILLIN SODIUM\TAZOBACTAM SODIUM
     Indication: SECRETION DISCHARGE
  6. VANCOMYCIN [Suspect]
     Active Substance: VANCOMYCIN
     Indication: DYSPNOEA
     Dosage: ON HD04 AND HD05
  7. VANCOMYCIN [Suspect]
     Active Substance: VANCOMYCIN
     Indication: DYSPNOEA
     Dosage: ON HD06,HD07 AND HD08

REACTIONS (3)
  - Acute kidney injury [Recovered/Resolved]
  - Renal tubular necrosis [Recovered/Resolved]
  - Nephropathy toxic [Recovered/Resolved]
